FAERS Safety Report 4438998-8 (Version None)
Quarter: 2004Q3

REPORT INFORMATION
  Report Type: 
  Country: None (occurrence: None)
  Receive Date: 20040830
  Receipt Date: 20040818
  Transmission Date: 20050211
  Serious: Yes (Other)
  Sender: FDA-Public Use
  Company Number: 2004229689JP

PATIENT
  Sex: 0

DRUGS (1)
  1. SOLU-MEDROL [Suspect]

REACTIONS (2)
  - CONDITION AGGRAVATED [None]
  - SPASTIC PARAPLEGIA [None]
